FAERS Safety Report 7733128-9 (Version None)
Quarter: 2011Q3

REPORT INFORMATION
  Report Type: 
  Country: None (occurrence: None)
  Receive Date: 20110907
  Receipt Date: 20110901
  Transmission Date: 20111222
  Serious: No
  Sender: FDA-Public Use
  Company Number: US-PFIZER INC-2011205082

PATIENT
  Sex: Female
  Weight: 56.6 kg

DRUGS (5)
  1. CHANTIX [Suspect]
     Indication: SMOKING CESSATION THERAPY
     Dosage: 0.5 MG, DAILY
     Dates: start: 20110729
  2. NITROFURANTOIN MACROCRYSTALLINE [Suspect]
     Indication: ORAL CANDIDIASIS
     Dosage: 100 MG, 2X/DAY
     Dates: start: 20110822, end: 20110829
  3. METRONIDAZOLE [Suspect]
     Indication: URINARY TRACT INFECTION
     Dosage: UNK, DAILY
     Dates: start: 20110822, end: 20110827
  4. PRAVASTATIN [Concomitant]
     Indication: BLOOD CHOLESTEROL INCREASED
     Dosage: 20 MG, DAILY
  5. LEVOTHYROXINE [Concomitant]
     Indication: THYROID DISORDER
     Dosage: 0.075 MG, DAILY

REACTIONS (1)
  - NAUSEA [None]
